FAERS Safety Report 24572173 (Version 7)
Quarter: 2024Q4

REPORT INFORMATION
  Report Type: Spontaneous
  Country: FR (occurrence: FR)
  Receive Date: 20241101
  Receipt Date: 20241204
  Transmission Date: 20250114
  Serious: Yes (Hospitalization, Other)
  Sender: BAXTER
  Company Number: FR-BAXTER-2024BAX026812

PATIENT
  Age: 75 Year
  Sex: Male
  Weight: 87.8 kg

DRUGS (43)
  1. DOXORUBICIN [Suspect]
     Active Substance: DOXORUBICIN
     Indication: Diffuse large B-cell lymphoma stage IV
     Dosage: 50 MG/M2, C1D1, R-CHOP ON 3-WEEK CYCLE (21 DAYS) (DAY 1), FORMULATION: SOLUTION FOR INFUSION
     Route: 042
     Dates: start: 20241001, end: 20241001
  2. DOXORUBICIN [Suspect]
     Active Substance: DOXORUBICIN
     Indication: Richter^s syndrome
     Dosage: 50 MG/M2, C2D1, R-CHOP ON 3-WEEK CYCLE (21 DAYS) (DAY 1), FORMULATION: SOLUTION FOR INFUSION
     Route: 042
     Dates: start: 20241023, end: 20241023
  3. CYCLOPHOSPHAMIDE [Suspect]
     Active Substance: CYCLOPHOSPHAMIDE
     Indication: Diffuse large B-cell lymphoma stage IV
     Dosage: 750 MG/M2, C1D1, R-CHOP ON 3-WEEK CYCLE (21 DAYS) (DAY 1), FORMULATION: POWDER FOR SOLUTION FOR INJE
     Route: 042
     Dates: start: 20241001, end: 20241001
  4. CYCLOPHOSPHAMIDE [Suspect]
     Active Substance: CYCLOPHOSPHAMIDE
     Indication: Richter^s syndrome
     Dosage: 750 MG/M2, C2D1, R-CHOP ON 3-WEEK CYCLE (21 DAYS) (DAY 1), FORMULATION: POWDER FOR SOLUTION FOR INJE
     Route: 042
     Dates: start: 20241023, end: 20241023
  5. VINCRISTINE [Suspect]
     Active Substance: VINCRISTINE
     Indication: Diffuse large B-cell lymphoma stage IV
     Dosage: 1.4 MG/M2 (RECOMMENDED CAP OF 2 MG), C1D1, R-CHOP ON 3-WEEK CYCLE (21 DAYS) (DAY 1)
     Route: 042
     Dates: start: 20241001, end: 20241001
  6. VINCRISTINE [Suspect]
     Active Substance: VINCRISTINE
     Indication: Richter^s syndrome
     Dosage: 1.4 MG/M2 (RECOMMENDED CAP OF 2 MG), C2D1, R-CHOP ON 3-WEEK CYCLE (21 DAYS) (DAY 1)
     Route: 042
     Dates: start: 20241023, end: 20241023
  7. PREDNISONE [Suspect]
     Active Substance: PREDNISONE
     Indication: Diffuse large B-cell lymphoma stage IV
     Dosage: 100 MG/DAY, D1-D5, R-CHOP ON 3-WEEK CYCLE (21 DAYS)
     Route: 065
  8. PREDNISONE [Suspect]
     Active Substance: PREDNISONE
     Indication: Richter^s syndrome
     Dosage: UNSPECIFIED DOSE, START DATE: OCT-2024
     Route: 065
  9. PREDNISONE [Suspect]
     Active Substance: PREDNISONE
     Dosage: (DOSAGE TEXT: R-CHOP THERAPY/D1-D5) 100 MG ONCE DAILY
     Route: 042
     Dates: start: 20241001
  10. PREDNISONE [Suspect]
     Active Substance: PREDNISONE
     Dosage: (DOSAGE TEXT: 100 MG/DAY, C1D1, D1-D5, R-CHOP ON 3-WEEK CYCLE (21 DAYS)) (DOSAGE FORM: TABLET) 100 M
     Route: 048
     Dates: start: 20241001
  11. RITUXIMAB [Suspect]
     Active Substance: RITUXIMAB
     Indication: Diffuse large B-cell lymphoma stage IV
     Dosage: 375 MG/M2, C1D1, R-CHOP ON 3-WEEK CYCLE (21 DAYS) (DAY 1) (DOSAGE TEXT: ON 01-OCT-2024, MOST RECENT
     Route: 042
     Dates: start: 20241001, end: 20241001
  12. RITUXIMAB [Suspect]
     Active Substance: RITUXIMAB
     Indication: Richter^s syndrome
     Dosage: 375 MG/M2, C2D1, R-CHOP ON 3-WEEK CYCLE (21 DAYS) (DAY 1)
     Route: 042
     Dates: start: 20241023, end: 20241023
  13. EPCORITAMAB [Suspect]
     Active Substance: EPCORITAMAB
     Indication: Diffuse large B-cell lymphoma stage IV
     Dosage: 0.16 MG PRIMING DOSE ON C1D1 (DUOBODY-CD3XCD20)
     Route: 058
     Dates: start: 20241001, end: 20241001
  14. EPCORITAMAB [Suspect]
     Active Substance: EPCORITAMAB
     Indication: Richter^s syndrome
     Dosage: 0.8 MG INTERMEDIATE DOSE ON C1D8 (DUOBODY-CD3XCD20)
     Route: 058
     Dates: start: 20241008, end: 20241008
  15. EPCORITAMAB [Suspect]
     Active Substance: EPCORITAMAB
     Dosage: 48 MG, C1D15 (FIRST FULL DOSE) - C2D1
     Route: 058
     Dates: start: 20241016, end: 20241023
  16. EPCORITAMAB [Suspect]
     Active Substance: EPCORITAMAB
     Dosage: 48 MG, C2D1
     Route: 058
     Dates: start: 20241023
  17. EPCORITAMAB [Suspect]
     Active Substance: EPCORITAMAB
     Dosage: 48 MG, C2D15
     Route: 058
     Dates: start: 20241107, end: 20241107
  18. EPCORITAMAB [Suspect]
     Active Substance: EPCORITAMAB
     Dosage: (DUOBODY-CD3XCD20) (DOSAGE FORM: INJECTION, SOLUTION) (ON 08-OCT-2024, THE INTERMEDIATE DOSE 0.8 MG
     Route: 058
     Dates: start: 20241016
  19. POLARAMINE [Concomitant]
     Active Substance: DEXCHLORPHENIRAMINE MALEATE
     Indication: Premedication
     Dosage: 5 MG
     Route: 042
     Dates: start: 20241001, end: 20241001
  20. POLARAMINE [Concomitant]
     Active Substance: DEXCHLORPHENIRAMINE MALEATE
     Dosage: 5 MG
     Route: 042
     Dates: start: 20241016, end: 20241016
  21. POLARAMINE [Concomitant]
     Active Substance: DEXCHLORPHENIRAMINE MALEATE
     Dosage: 5 MG
     Route: 042
     Dates: start: 20241023, end: 20241023
  22. POLARAMINE [Concomitant]
     Active Substance: DEXCHLORPHENIRAMINE MALEATE
     Dosage: 5 MG
     Route: 042
     Dates: start: 20241107, end: 20241107
  23. ACETAMINOPHEN [Concomitant]
     Active Substance: ACETAMINOPHEN
     Indication: Premedication
     Dosage: 1 G, START TIME: AT 10:25 HRS (DATE AND TIME OF LAST ADMINISTRATION: 01-OCT-2024)
     Route: 042
     Dates: start: 20241001
  24. ACETAMINOPHEN [Concomitant]
     Active Substance: ACETAMINOPHEN
     Dosage: 1 G, START TIME: AT 04:40 HRS
     Route: 065
     Dates: start: 20241001
  25. ACETAMINOPHEN [Concomitant]
     Active Substance: ACETAMINOPHEN
     Dosage: UNK
     Route: 065
     Dates: start: 20241009, end: 20241010
  26. ACETAMINOPHEN [Concomitant]
     Active Substance: ACETAMINOPHEN
     Dosage: 1 G
     Route: 042
     Dates: start: 20241016, end: 20241016
  27. ACETAMINOPHEN [Concomitant]
     Active Substance: ACETAMINOPHEN
     Dosage: 1 G
     Route: 042
     Dates: start: 20241023, end: 20241023
  28. ACETAMINOPHEN [Concomitant]
     Active Substance: ACETAMINOPHEN
     Dosage: 1 G
     Route: 048
     Dates: start: 20241107, end: 20241107
  29. SMECTA [Concomitant]
     Active Substance: MONTMORILLONITE
     Dosage: UNK
     Route: 065
     Dates: start: 20241009, end: 20241010
  30. FOSFOMYCIN [Concomitant]
     Active Substance: FOSFOMYCIN
     Dosage: UNK
     Route: 065
     Dates: start: 20241017, end: 20241017
  31. POTASSIUM CHLORIDE [Concomitant]
     Active Substance: POTASSIUM CHLORIDE
     Dosage: UNK
     Route: 065
     Dates: start: 20241014, end: 20241016
  32. OXYGEN [Concomitant]
     Active Substance: OXYGEN
     Dosage: UNK
     Route: 065
     Dates: start: 20241016, end: 20241016
  33. TOCILIZUMAB [Concomitant]
     Active Substance: TOCILIZUMAB
     Dosage: UNK
     Route: 065
     Dates: start: 20241017, end: 20241017
  34. MEROPENEM [Concomitant]
     Active Substance: MEROPENEM
     Dosage: UNK
     Route: 065
     Dates: start: 20241017, end: 20241017
  35. ELIQUIS [Concomitant]
     Active Substance: APIXABAN
     Dosage: ONGOING
     Route: 065
     Dates: start: 202102
  36. BISOPROLOL [Concomitant]
     Active Substance: BISOPROLOL
     Dosage: ONGOING
     Route: 065
     Dates: start: 202102
  37. SILODOSIN [Concomitant]
     Active Substance: SILODOSIN
     Dosage: ONGOING
     Route: 065
     Dates: start: 2022
  38. TROSPIUM CHLORIDE [Concomitant]
     Active Substance: TROSPIUM CHLORIDE
     Dosage: ONGOING
     Route: 065
     Dates: start: 2022
  39. ALLOPURINOL [Concomitant]
     Active Substance: ALLOPURINOL
     Dosage: ONGOING
     Route: 065
     Dates: start: 20240926
  40. VALACYCLOVIR HYDROCHLORIDE [Concomitant]
     Active Substance: VALACYCLOVIR HYDROCHLORIDE
     Dosage: ONGOING
     Route: 065
     Dates: start: 20240101
  41. BACTRIM [Concomitant]
     Active Substance: SULFAMETHOXAZOLE\TRIMETHOPRIM
     Dosage: ONGOING
     Route: 065
     Dates: start: 20241001
  42. OMEPRAZOLE [Concomitant]
     Active Substance: OMEPRAZOLE
     Dosage: ONGOING
     Route: 065
     Dates: start: 1990
  43. TAHOR [Concomitant]
     Active Substance: ATORVASTATIN CALCIUM
     Dosage: ONGOING
     Route: 065
     Dates: start: 2004

REACTIONS (5)
  - Cytokine release syndrome [Recovered/Resolved]
  - Pyrexia [Unknown]
  - Cytokine release syndrome [Not Recovered/Not Resolved]
  - Febrile neutropenia [Not Recovered/Not Resolved]
  - Anaemia [Recovered/Resolved]

NARRATIVE: CASE EVENT DATE: 20241014
